FAERS Safety Report 9421903 (Version 2)
Quarter: 2013Q3

REPORT INFORMATION
  Report Type: Spontaneous
  Country: US (occurrence: US)
  Receive Date: 20130726
  Receipt Date: 20130815
  Transmission Date: 20140515
  Serious: Yes (Other)
  Sender: FDA-Public Use
  Company Number: US-PFIZER INC-2013214657

PATIENT
  Age: 56 Year
  Sex: Female

DRUGS (2)
  1. TOVIAZ [Suspect]
     Indication: HYPERTONIC BLADDER
     Dosage: 1 MG, 1X/DAY
     Route: 048
     Dates: start: 201203, end: 20130801
  2. HYDROCHLOROTHIAZIDE WITH TRIAMTERENE [Concomitant]
     Indication: HYPERTENSION
     Dosage: 1 DF (37.5MG/25MG), 1X/DAY
     Route: 048

REACTIONS (5)
  - Balance disorder [Unknown]
  - Limb injury [Unknown]
  - Asthenia [Unknown]
  - Weight decreased [Unknown]
  - Drug ineffective [Unknown]
